FAERS Safety Report 9114857 (Version 1)
Quarter: 2013Q1

REPORT INFORMATION
  Report Type: Spontaneous
  Country: DK (occurrence: None)
  Receive Date: 20130129
  Receipt Date: 20130129
  Transmission Date: 20140127
  Serious: No
  Sender: FDA-Public Use
  Company Number: 2013MA000530

PATIENT
  Age: 30 Year
  Sex: Female

DRUGS (5)
  1. PROPRANOLOL HCL EXTENDED-RELEASE CAPSULES USP, 80MG (AELLC) (PROPRANOLOL) [Suspect]
     Indication: ANXIETY
     Route: 048
  2. VENLAFAXINE (VENLAFAXINE) [Suspect]
     Indication: ANXIETY
     Route: 048
  3. DULOXETINE [Concomitant]
  4. AMITRIPTYLINE (AMITRIPTYLINE) [Suspect]
     Indication: ANXIETY
     Route: 048
  5. ZOPICLONE (ZOPICLONE) [Suspect]
     Indication: ANXIETY
     Route: 048

REACTIONS (5)
  - Pregnancy [None]
  - Exposure during pregnancy [None]
  - Abdominal pain [None]
  - Foetal death [None]
  - Premature separation of placenta [None]
